FAERS Safety Report 7893922-0 (Version None)
Quarter: 2011Q4

REPORT INFORMATION
  Report Type: 
  Country: None (occurrence: None)
  Receive Date: 20111104
  Receipt Date: 20111031
  Transmission Date: 20120403
  Serious: Yes (Death, Life-Threatening)
  Sender: FDA-Public Use
  Company Number: JP-PFIZER INC-2011238372

PATIENT
  Age: 78 Year
  Sex: Male
  Weight: 49 kg

DRUGS (4)
  1. ZOSYN [Suspect]
     Indication: PNEUMONIA ASPIRATION
     Dosage: 4.5 G DAILY
     Route: 041
     Dates: start: 20111004, end: 20111006
  2. HEPARIN SODIUM [Suspect]
     Indication: THROMBOSIS PROPHYLAXIS
  3. VFEND [Suspect]
     Indication: BRONCHOPULMONARY ASPERGILLOSIS
     Dosage: 300 MG DAILY
     Route: 048
     Dates: start: 20110921, end: 20110928
  4. VFEND [Suspect]
     Dosage: 400 MG DAILY
     Route: 041
     Dates: start: 20110929, end: 20111006

REACTIONS (2)
  - PNEUMONIA ASPIRATION [None]
  - PLATELET COUNT DECREASED [None]
